FAERS Safety Report 9689338 (Version 1)
Quarter: 2013Q4

REPORT INFORMATION
  Report Type: Spontaneous
  Country: GB (occurrence: GB)
  Receive Date: 20131114
  Receipt Date: 20131114
  Transmission Date: 20140711
  Serious: Yes (Other)
  Sender: FDA-Public Use
  Company Number: GB-WATSON-2013-21059

PATIENT
  Sex: Female

DRUGS (2)
  1. TRIMETHOPRIM (UNKNOWN) [Suspect]
     Indication: PRODUCT USED FOR UNKNOWN INDICATION
     Dosage: UNK
     Route: 065
  2. METOJECT [Suspect]
     Indication: RHEUMATIC DISORDER
     Dosage: 20 MG, 1/WEEK
     Route: 065

REACTIONS (1)
  - Pancytopenia [Unknown]
